FAERS Safety Report 12983800 (Version 2)
Quarter: 2017Q4

REPORT INFORMATION
  Report Type: Spontaneous
  Country: US (occurrence: US)
  Receive Date: 20161129
  Receipt Date: 20171214
  Transmission Date: 20180320
  Serious: No
  Sender: FDA-Public Use
  Company Number: US-ENDO PHARMACEUTICALS INC.-2016-001696

PATIENT
  Sex: Male
  Weight: 138.32 kg

DRUGS (5)
  1. ASPIRIN EC [Concomitant]
     Active Substance: ASPIRIN
     Indication: PRODUCT USED FOR UNKNOWN INDICATION
  2. ALPHA AND BETA BLOCKING AGENTS [Concomitant]
     Active Substance: UNSPECIFIED INGREDIENT
     Indication: PRODUCT USED FOR UNKNOWN INDICATION
  3. TESTIM [Suspect]
     Active Substance: TESTOSTERONE
     Indication: BLOOD TESTOSTERONE DECREASED
     Dosage: 100 MG, UNK
     Route: 065
  4. TESTIM [Suspect]
     Active Substance: TESTOSTERONE
     Dosage: 100 MG, ONE TUBE ON EACH SHOULDER EVERY NIGHT
     Route: 061
     Dates: start: 2016
  5. INSULIN [Concomitant]
     Active Substance: INSULIN NOS
     Indication: DIABETES MELLITUS

REACTIONS (4)
  - Underdose [Not Recovered/Not Resolved]
  - Product container issue [Not Recovered/Not Resolved]
  - Muscle disorder [Unknown]
  - Inappropriate schedule of drug administration [Unknown]
